FAERS Safety Report 16867586 (Version 1)
Quarter: 2019Q4

REPORT INFORMATION
  Report Type: Spontaneous
  Country: US (occurrence: US)
  Receive Date: 20190929
  Receipt Date: 20190929
  Transmission Date: 20200122
  Serious: Yes (Other)
  Sender: FDA-Public Use
  Company Number: None

PATIENT
  Age: 33 Year
  Sex: Female
  Weight: 56.7 kg

DRUGS (2)
  1. ZANTAC 150 (RANITIDINE HYDROCHLORIDE) [Concomitant]
     Active Substance: RANITIDINE HYDROCHLORIDE
  2. PARAGARD T 380A [Suspect]
     Active Substance: COPPER
     Dates: start: 20180216, end: 20180711

REACTIONS (10)
  - Complication associated with device [None]
  - Drug ineffective [None]
  - Nausea [None]
  - Surgical procedure repeated [None]
  - Muscle spasms [None]
  - Dysmenorrhoea [None]
  - Paraesthesia [None]
  - Complication of device removal [None]
  - Vaginal infection [None]
  - Fungal infection [None]

NARRATIVE: CASE EVENT DATE: 20190501
